FAERS Safety Report 5032543-4 (Version None)
Quarter: 2006Q2

REPORT INFORMATION
  Report Type: 
  Country: None (occurrence: None)
  Receive Date: 20060622
  Receipt Date: 20060613
  Transmission Date: 20061013
  Serious: Yes (Hospitalization)
  Sender: FDA-Public Use
  Company Number: 2006CG01037

PATIENT
  Age: 81 Year
  Sex: Female

DRUGS (7)
  1. MOPRAL [Suspect]
     Route: 048
  2. ALDACTONE [Interacting]
     Route: 048
     Dates: start: 20060127, end: 20060527
  3. COAPROVEL [Interacting]
     Dosage: 300 + 12.5 MG DAILY
     Route: 048
     Dates: end: 20060527
  4. CORDARONE [Interacting]
     Route: 048
  5. EUPRESSYL [Concomitant]
     Route: 048
     Dates: start: 20060201
  6. LEXOMIL [Concomitant]
     Route: 048
  7. DI-ANTALVIC [Concomitant]

REACTIONS (2)
  - DRUG INTERACTION [None]
  - HYPONATRAEMIA [None]
